FAERS Safety Report 4377701-7 (Version None)
Quarter: 2004Q2

REPORT INFORMATION
  Report Type: 
  Country: None (occurrence: None)
  Receive Date: 20040608
  Receipt Date: 20040527
  Transmission Date: 20050107
  Serious: No
  Sender: FDA-Public Use
  Company Number: 04P-150-0262354-00

PATIENT
  Sex: Male

DRUGS (3)
  1. KALETRA [Suspect]
  2. DIDANOSINE [Concomitant]
  3. ZIDOVUDINE W/LAMIVUDINE [Concomitant]

REACTIONS (1)
  - PULMONARY EMBOLISM [None]
